FAERS Safety Report 8815959 (Version 3)
Quarter: 2014Q3

REPORT INFORMATION
  Report Type: Report from Study
  Country: US (occurrence: US)
  Receive Date: 20120928
  Receipt Date: 20140819
  Transmission Date: 20150326
  Serious: Yes (Death, Hospitalization, Other)
  Sender: FDA-Public Use
  Company Number: US-ROCHE-1129976

PATIENT
  Sex: Female
  Weight: 74 kg

DRUGS (3)
  1. AVASTIN [Suspect]
     Active Substance: BEVACIZUMAB
     Indication: BREAST CANCER FEMALE
     Route: 065
  2. XELODA [Suspect]
     Active Substance: CAPECITABINE
     Indication: BREAST CANCER FEMALE
     Route: 048
  3. NAVELBINE [Concomitant]
     Active Substance: VINORELBINE TARTRATE

REACTIONS (11)
  - Metastases to liver [Fatal]
  - Off label use [Unknown]
  - Metastases to bone [Fatal]
  - Splenic lesion [Unknown]
  - Emphysema [Unknown]
  - Metastases to lymph nodes [Fatal]
  - Respiratory failure [Unknown]
  - Breast cancer metastatic [Fatal]
  - Cardiac failure congestive [Unknown]
  - Palmar-plantar erythrodysaesthesia syndrome [Unknown]
  - Disease progression [Unknown]
